FAERS Safety Report 22020436 (Version 1)
Quarter: 2023Q1

REPORT INFORMATION
  Report Type: Report from Study
  Country: US (occurrence: US)
  Receive Date: 20230222
  Receipt Date: 20230222
  Transmission Date: 20230417
  Serious: Yes (Other)
  Sender: FDA-Public Use
  Company Number: US-GLAXOSMITHKLINE-US2023AMR026489

PATIENT

DRUGS (2)
  1. BELIMUMAB [Suspect]
     Active Substance: BELIMUMAB
     Indication: Product used for unknown indication
     Dosage: UNK
     Route: 065
     Dates: start: 202301
  2. EPOPROSTENOL SODIUM [Suspect]
     Active Substance: EPOPROSTENOL SODIUM
     Indication: Pulmonary arterial hypertension
     Dosage: 60480 NG/KG( 42 NG/KG, 1 IN 1 MIN)
     Route: 042
     Dates: start: 201902

REACTIONS (6)
  - Oxygen saturation decreased [Unknown]
  - Arthralgia [Unknown]
  - Vomiting [Unknown]
  - Hypervolaemia [Unknown]
  - Fatigue [Unknown]
  - Lip discolouration [Unknown]

NARRATIVE: CASE EVENT DATE: 20230101
